FAERS Safety Report 19960237 (Version 2)
Quarter: 2021Q4

REPORT INFORMATION
  Report Type: Spontaneous
  Country: US (occurrence: US)
  Receive Date: 20211015
  Receipt Date: 20211213
  Transmission Date: 20220303
  Serious: Yes (Other)
  Sender: FDA-Public Use
  Company Number: US-OTSUKA-2021_031886

PATIENT
  Sex: Male

DRUGS (7)
  1. ABILIFY [Suspect]
     Active Substance: ARIPIPRAZOLE
     Indication: Schizophrenia
     Dosage: 10 MG
     Route: 065
     Dates: start: 201708, end: 20210830
  2. ABILIFY [Suspect]
     Active Substance: ARIPIPRAZOLE
     Dosage: 5 MG, QW
     Route: 065
     Dates: start: 202107, end: 202107
  3. CAPLYTA [Suspect]
     Active Substance: LUMATEPERONE
     Indication: Schizophrenia
     Dosage: 42 MG, EVERY 48 HOURS
     Route: 065
     Dates: start: 20210629
  4. CAPLYTA [Suspect]
     Active Substance: LUMATEPERONE
     Dosage: 42 MG, QD
     Route: 065
     Dates: start: 20210629, end: 20210830
  5. SEROQUEL [Suspect]
     Active Substance: QUETIAPINE FUMARATE
     Indication: Product used for unknown indication
     Dosage: UNK
     Route: 065
     Dates: start: 20210908, end: 20210922
  6. CYMBALTA [Suspect]
     Active Substance: DULOXETINE HYDROCHLORIDE
     Indication: Product used for unknown indication
     Dosage: 30 MG FOR A WEEK
     Route: 065
     Dates: start: 202109, end: 202109
  7. LATUDA [Concomitant]
     Active Substance: LURASIDONE HYDROCHLORIDE
     Indication: Product used for unknown indication
     Dosage: UNK
     Route: 065

REACTIONS (18)
  - Trismus [Unknown]
  - Impaired self-care [Not Recovered/Not Resolved]
  - Tobacco abuse [Not Recovered/Not Resolved]
  - Asocial behaviour [Not Recovered/Not Resolved]
  - Withdrawal syndrome [Not Recovered/Not Resolved]
  - Sleep apnoea syndrome [Unknown]
  - Abnormal behaviour [Not Recovered/Not Resolved]
  - Soliloquy [Not Recovered/Not Resolved]
  - Confusional state [Not Recovered/Not Resolved]
  - Nervousness [Not Recovered/Not Resolved]
  - Tic [Unknown]
  - Memory impairment [Unknown]
  - Restlessness [Not Recovered/Not Resolved]
  - Hyperhidrosis [Not Recovered/Not Resolved]
  - Weight increased [Unknown]
  - Dyskinesia [Unknown]
  - Drug ineffective [Unknown]
  - Intentional underdose [Unknown]

NARRATIVE: CASE EVENT DATE: 20210101
